FAERS Safety Report 8958599 (Version 2)
Quarter: 2013Q1

REPORT INFORMATION
  Report Type: Spontaneous
  Country: US (occurrence: None)
  Receive Date: 20121203
  Receipt Date: 20130128
  Transmission Date: 20140127
  Serious: Yes (Death)
  Sender: FDA-Public Use
  Company Number: JPI-P-026458

PATIENT
  Age: 35 Year
  Sex: Female
  Weight: 56.25 kg

DRUGS (5)
  1. XYREM (500 MILLIGRAM/MILLILITERS, SOLUTION) (SODIUM OXYBATE) [Suspect]
     Indication: CATAPLEXY
     Dosage: (1.5 GM, 2 IN 1 D)
     Route: 048
     Dates: start: 20120614, end: 2012
  2. ONDANSETRON HYDROCHLORIDE [Concomitant]
  3. ARMODAFINIL [Concomitant]
  4. ALBUTEROL SULFATE [Concomitant]
  5. FLURAZEPAM [Concomitant]

REACTIONS (9)
  - Road traffic accident [None]
  - Periorbital haematoma [None]
  - Anxiety [None]
  - Initial insomnia [None]
  - Intentional drug misuse [None]
  - Drug ineffective [None]
  - Mental disorder [None]
  - Concussion [None]
  - Multiple injuries [None]
